FAERS Safety Report 21226199 (Version 2)
Quarter: 2022Q3

REPORT INFORMATION
  Report Type: Spontaneous
  Country: US (occurrence: None)
  Receive Date: 20220818
  Receipt Date: 20220923
  Transmission Date: 20221026
  Serious: Yes (Hospitalization)
  Sender: FDA-Public Use
  Company Number: US-ROCHE-3157488

PATIENT
  Sex: Male

DRUGS (2)
  1. HEMLIBRA [Suspect]
     Active Substance: EMICIZUMAB-KXWH
     Indication: Factor VIII deficiency
     Dosage: 405MG(2.7ML)
     Route: 058
     Dates: start: 202105
  2. HEMLIBRA [Suspect]
     Active Substance: EMICIZUMAB-KXWH
     Dosage: FORM STRENGTH : 150 MG/ML
     Route: 058
     Dates: start: 202105

REACTIONS (3)
  - Muscle spasms [Unknown]
  - Burning sensation [Unknown]
  - Haemorrhage [Recovered/Resolved]
